FAERS Safety Report 20596912 (Version 2)
Quarter: 2023Q1

REPORT INFORMATION
  Report Type: Spontaneous
  Country: US (occurrence: US)
  Receive Date: 20220315
  Receipt Date: 20230313
  Transmission Date: 20230417
  Serious: No
  Sender: FDA-Public Use
  Company Number: US-PERRIGO-21US004924

PATIENT
  Sex: Female
  Weight: 63.492 kg

DRUGS (3)
  1. NICOTINE POLACRILEX [Suspect]
     Active Substance: NICOTINE
     Indication: Smoking cessation therapy
     Dosage: UNKNOWN, UNKNOWN
     Route: 002
     Dates: start: 20060131, end: 2021
  2. NICOTINE POLACRILEX [Suspect]
     Active Substance: NICOTINE
     Indication: Tobacco abuse
     Dosage: UP TO 24 LOZENGES, QD, PRN
     Route: 002
     Dates: start: 2021
  3. VITAMINS NOS [Concomitant]
     Active Substance: VITAMINS
     Indication: Product used for unknown indication
     Dosage: UNKNOWN, UNKNOWN
     Route: 065

REACTIONS (8)
  - Decreased appetite [Not Recovered/Not Resolved]
  - Faeces discoloured [Recovered/Resolved]
  - Confusional state [Not Recovered/Not Resolved]
  - Mood altered [Unknown]
  - Amnesia [Unknown]
  - Insomnia [Unknown]
  - Off label use [Unknown]
  - Overdose [Unknown]

NARRATIVE: CASE EVENT DATE: 20180101
